FAERS Safety Report 21458402 (Version 2)
Quarter: 2022Q4

REPORT INFORMATION
  Report Type: Spontaneous
  Country: US (occurrence: US)
  Receive Date: 20221014
  Receipt Date: 20221018
  Transmission Date: 20230113
  Serious: Yes (Hospitalization)
  Sender: FDA-Public Use
  Company Number: US-PFIZER INC-202201225195

PATIENT
  Age: 78 Year
  Sex: Male
  Weight: 81.646 kg

DRUGS (1)
  1. BOSULIF [Suspect]
     Active Substance: BOSUTINIB MONOHYDRATE
     Dosage: UNK, 1X/DAY

REACTIONS (2)
  - Psychotic behaviour [Unknown]
  - Memory impairment [Unknown]

NARRATIVE: CASE EVENT DATE: 20221011
